FAERS Safety Report 26046751 (Version 1)
Quarter: 2025Q4

REPORT INFORMATION
  Report Type: Spontaneous
  Country: CN (occurrence: CN)
  Receive Date: 20251114
  Receipt Date: 20251114
  Transmission Date: 20260117
  Serious: Yes (Hospitalization)
  Sender: COHERUS
  Company Number: CN-SHANGHAI JUNSHI BIOSCIENCES CO., LTD.-CN2025016469

PATIENT

DRUGS (6)
  1. TORIPALIMAB [Suspect]
     Active Substance: TORIPALIMAB
     Indication: Pancreatic carcinoma
     Dosage: 240 MG, THE 1ST CYCLE
     Route: 041
     Dates: start: 20250605, end: 20250605
  2. TORIPALIMAB [Suspect]
     Active Substance: TORIPALIMAB
     Dosage: 240 MG, THE 2ND CYCLE
     Route: 041
  3. ETOPOSIDE [Suspect]
     Active Substance: ETOPOSIDE
     Indication: Pancreatic carcinoma
     Dosage: 140 MG, THE 1ST CYCLE
     Route: 041
     Dates: start: 20250602, end: 20250602
  4. ETOPOSIDE [Suspect]
     Active Substance: ETOPOSIDE
     Dosage: UNK, THE 2ND CYCLE
     Route: 041
  5. CISPLATIN [Suspect]
     Active Substance: CISPLATIN
     Indication: Pancreatic carcinoma
     Dosage: 35 MG, THE 1ST CYCLE
     Route: 041
     Dates: start: 20250602, end: 20250602
  6. CISPLATIN [Suspect]
     Active Substance: CISPLATIN
     Dosage: UNK, THE 2ND CYCLE
     Route: 041

REACTIONS (1)
  - Myelosuppression [Recovering/Resolving]

NARRATIVE: CASE EVENT DATE: 20250621
